FAERS Safety Report 4516700-9 (Version None)
Quarter: 2004Q4

REPORT INFORMATION
  Report Type: 
  Country: None (occurrence: None)
  Receive Date: 20041005
  Receipt Date: 20040827
  Transmission Date: 20050328
  Serious: Yes (Other)
  Sender: FDA-Public Use
  Company Number: PHEH2004US09321

PATIENT
  Age: 11 Year
  Sex: Male

DRUGS (3)
  1. RITALIN LA [Suspect]
     Indication: ATTENTION DEFICIT/HYPERACTIVITY DISORDER
     Dosage: 20 MG, QD, ORAL
     Route: 048
     Dates: start: 20040730, end: 20040822
  2. DEPAKOTE [Concomitant]
  3. KLONOPIN [Concomitant]

REACTIONS (1)
  - CONVULSION [None]
